FAERS Safety Report 10355058 (Version 2)
Quarter: 2014Q3

REPORT INFORMATION
  Report Type: Spontaneous
  Country: IT (occurrence: IT)
  Receive Date: 20140731
  Receipt Date: 20140929
  Transmission Date: 20150326
  Serious: Yes (Hospitalization)
  Sender: FDA-Public Use
  Company Number: IT-TEVA-497265ISR

PATIENT
  Age: 86 Year
  Sex: Male

DRUGS (5)
  1. DEPAKIN CHRONO - 300 MG COMPRESSE A RILASCIO PROLUNGATO [Suspect]
     Active Substance: VALPROATE SODIUM
     Indication: PRODUCT USED FOR UNKNOWN INDICATION
     Dates: start: 20130613, end: 20140613
  2. URBASON - 4 MG COMPRESSE - SANOFI- AVENTIS S.P.A. [Suspect]
     Active Substance: METHYLPREDNISOLONE
     Indication: PRODUCT USED FOR UNKNOWN INDICATION
     Route: 048
     Dates: start: 20130613, end: 20140613
  3. PAROXETINE [Suspect]
     Active Substance: PAROXETINE\PAROXETINE HYDROCHLORIDE
     Indication: PRODUCT USED FOR UNKNOWN INDICATION
     Dates: start: 20130613, end: 20140613
  4. ZYLORIC - 100 MG COMPRESSE - TEOFARMA S.R.L. [Suspect]
     Active Substance: ALLOPURINOL
     Indication: PRODUCT USED FOR UNKNOWN INDICATION
     Dates: start: 20130613, end: 20140613
  5. COUMADIN [Suspect]
     Active Substance: WARFARIN SODIUM
     Indication: PRODUCT USED FOR UNKNOWN INDICATION
     Dates: start: 20140422, end: 20140613

REACTIONS (4)
  - Syncope [Recovering/Resolving]
  - Anaemia [Recovering/Resolving]
  - International normalised ratio increased [Recovering/Resolving]
  - Melaena [Recovering/Resolving]

NARRATIVE: CASE EVENT DATE: 20140613
